FAERS Safety Report 21648142 (Version 5)
Quarter: 2023Q2

REPORT INFORMATION
  Report Type: Report from Study
  Country: FR (occurrence: FR)
  Receive Date: 20221128
  Receipt Date: 20230607
  Transmission Date: 20230721
  Serious: Yes (Other)
  Sender: FDA-Public Use
  Company Number: FR-SA-SAC20221122000965

PATIENT
  Age: 64 Year
  Sex: Male
  Weight: 83 kg

DRUGS (27)
  1. ISATUXIMAB [Suspect]
     Active Substance: ISATUXIMAB
     Indication: Plasma cell myeloma
     Dosage: 880 MG
     Route: 065
     Dates: start: 20220616, end: 20220616
  2. ISATUXIMAB [Suspect]
     Active Substance: ISATUXIMAB
     Dosage: 860 MG
     Dates: start: 20221103, end: 20221103
  3. ISATUXIMAB [Suspect]
     Active Substance: ISATUXIMAB
     Dosage: 840 MG
     Dates: start: 20230310, end: 20230310
  4. ISATUXIMAB [Suspect]
     Active Substance: ISATUXIMAB
     Dosage: 840 MG
     Dates: start: 20230416, end: 20230416
  5. ISATUXIMAB [Suspect]
     Active Substance: ISATUXIMAB
     Dosage: 840 MG
     Dates: start: 20230421, end: 20230421
  6. ISATUXIMAB [Suspect]
     Active Substance: ISATUXIMAB
     Dosage: 840 MG
     Dates: start: 20230519, end: 20230519
  7. CARFILZOMIB [Suspect]
     Active Substance: CARFILZOMIB
     Indication: Plasma cell myeloma
     Dosage: 58 MG
     Dates: start: 20220701, end: 20220701
  8. CARFILZOMIB [Suspect]
     Active Substance: CARFILZOMIB
     Dosage: 42 MG
     Dates: start: 20220616, end: 20220616
  9. CARFILZOMIB [Suspect]
     Active Substance: CARFILZOMIB
     Dosage: 116 MG
     Dates: start: 20221103, end: 20221103
  10. CARFILZOMIB [Suspect]
     Active Substance: CARFILZOMIB
     Dosage: 114 MG
     Dates: start: 20230317, end: 20230317
  11. CARFILZOMIB [Suspect]
     Active Substance: CARFILZOMIB
     Dosage: 114 MG
     Dates: start: 20230413, end: 20230413
  12. CARFILZOMIB [Suspect]
     Active Substance: CARFILZOMIB
     Dosage: 114 MG
     Dates: start: 20230421, end: 20230421
  13. CARFILZOMIB [Suspect]
     Active Substance: CARFILZOMIB
     Dosage: 114 MG
     Dates: start: 20230519, end: 20230519
  14. POMALIDOMIDE [Suspect]
     Active Substance: POMALIDOMIDE
     Indication: Plasma cell myeloma
     Dosage: 3 MG
     Dates: start: 20220701, end: 20220701
  15. POMALIDOMIDE [Suspect]
     Active Substance: POMALIDOMIDE
     Dosage: 3 MG
     Dates: start: 20220616, end: 20220616
  16. POMALIDOMIDE [Suspect]
     Active Substance: POMALIDOMIDE
     Dosage: 3 MG
     Dates: start: 20221103, end: 20221103
  17. POMALIDOMIDE [Suspect]
     Active Substance: POMALIDOMIDE
     Dosage: 3 MG
     Dates: start: 20230317, end: 20230317
  18. POMALIDOMIDE [Suspect]
     Active Substance: POMALIDOMIDE
     Dosage: 3 MG
     Dates: start: 20230420, end: 20230420
  19. POMALIDOMIDE [Suspect]
     Active Substance: POMALIDOMIDE
     Dosage: 3 MG
     Dates: start: 20230427, end: 20230427
  20. POMALIDOMIDE [Suspect]
     Active Substance: POMALIDOMIDE
     Dosage: 3 MG
     Dates: start: 20230525, end: 20230525
  21. DEXAMETHASONE [Suspect]
     Active Substance: DEXAMETHASONE
     Indication: Plasma cell myeloma
     Dosage: 40 MG
     Dates: start: 20220630, end: 20220630
  22. DEXAMETHASONE [Suspect]
     Active Substance: DEXAMETHASONE
     Dosage: 40 MG
     Dates: start: 20220616, end: 20220616
  23. DEXAMETHASONE [Suspect]
     Active Substance: DEXAMETHASONE
     Dosage: 40 MG
     Dates: start: 20221103, end: 20221103
  24. DEXAMETHASONE [Suspect]
     Active Substance: DEXAMETHASONE
     Dosage: 40 MG
     Dates: start: 20230317, end: 20230317
  25. DEXAMETHASONE [Suspect]
     Active Substance: DEXAMETHASONE
     Dosage: 40 MG
     Dates: start: 20230413, end: 20230413
  26. DEXAMETHASONE [Suspect]
     Active Substance: DEXAMETHASONE
     Dosage: 40 MG
     Dates: start: 20230428, end: 20230428
  27. DEXAMETHASONE [Suspect]
     Active Substance: DEXAMETHASONE
     Dosage: 40 MG
     Dates: start: 20230526, end: 20230526

REACTIONS (6)
  - Neutrophil count decreased [Recovered/Resolved]
  - Hypertension [Recovered/Resolved]
  - Hypertension [Recovered/Resolved]
  - Hypertension [Recovered/Resolved]
  - Hypertension [Recovered/Resolved]
  - Hypertension [Recovered/Resolved]

NARRATIVE: CASE EVENT DATE: 20220705
